FAERS Safety Report 17917048 (Version 1)
Quarter: 2020Q2

REPORT INFORMATION
  Report Type: Spontaneous
  Country: GB (occurrence: GB)
  Receive Date: 20200619
  Receipt Date: 20200619
  Transmission Date: 20200714
  Serious: Yes (Other)
  Sender: FDA-Public Use
  Company Number: GB-HRAPH01-202000466

PATIENT
  Age: 25 Year
  Sex: Female
  Weight: 83.46 kg

DRUGS (1)
  1. ELLAONE [Suspect]
     Active Substance: ULIPRISTAL ACETATE
     Indication: POST COITAL CONTRACEPTION
     Route: 048
     Dates: start: 20200505, end: 20200505

REACTIONS (3)
  - Biochemical pregnancy [Unknown]
  - Unintended pregnancy [Unknown]
  - Drug ineffective [Unknown]
